FAERS Safety Report 19909499 (Version 1)
Quarter: 2021Q4

REPORT INFORMATION
  Report Type: Spontaneous
  Country: US (occurrence: US)
  Receive Date: 20211001
  Receipt Date: 20211001
  Transmission Date: 20220303
  Serious: No
  Sender: FDA-Public Use
  Company Number: US-AMARIN PHARMA, INC.-2021AMR000454

PATIENT
  Age: 69 Year
  Sex: Female
  Weight: 64.01 kg

DRUGS (8)
  1. VASCEPA [Suspect]
     Active Substance: ICOSAPENT ETHYL
     Indication: Blood triglycerides increased
     Dates: start: 2016, end: 2017
  2. VASCEPA [Suspect]
     Active Substance: ICOSAPENT ETHYL
     Dates: start: 201910, end: 20210124
  3. VASCEPA [Suspect]
     Active Substance: ICOSAPENT ETHYL
     Dates: start: 20210125, end: 202103
  4. VASCEPA [Suspect]
     Active Substance: ICOSAPENT ETHYL
     Dates: start: 202103, end: 202103
  5. VASCEPA [Suspect]
     Active Substance: ICOSAPENT ETHYL
     Dates: start: 202103
  6. LIPITOR [Suspect]
     Active Substance: ATORVASTATIN CALCIUM
     Indication: Product used for unknown indication
     Dates: end: 20201020
  7. LIPITOR [Suspect]
     Active Substance: ATORVASTATIN CALCIUM
  8. ZETIA [Concomitant]
     Active Substance: EZETIMIBE
     Indication: Blood cholesterol abnormal
     Dates: start: 20200211

REACTIONS (7)
  - Muscle spasms [Not Recovered/Not Resolved]
  - Eructation [Unknown]
  - Product taste abnormal [Unknown]
  - Arthritis [Not Recovered/Not Resolved]
  - Arthralgia [Not Recovered/Not Resolved]
  - Prescribed underdose [Not Recovered/Not Resolved]
  - Inappropriate schedule of product administration [Unknown]

NARRATIVE: CASE EVENT DATE: 20200101
